FAERS Safety Report 8925415 (Version 1)
Quarter: 2012Q4

REPORT INFORMATION
  Report Type: 
  Country: JP (occurrence: JP)
  Receive Date: 20121126
  Receipt Date: 20121126
  Transmission Date: 20130627
  Serious: Yes (Other)
  Sender: FDA-Public Use
  Company Number: JP-ROCHE-1154983

PATIENT

DRUGS (2)
  1. PEG-INTERFERON ALFA 2A [Suspect]
     Indication: HEPATIC NEOPLASM MALIGNANT
     Dosage: on days 1, 8, 15, and 22
     Route: 058
  2. 5-FU [Suspect]
     Indication: HEPATIC NEOPLASM MALIGNANT
     Dosage: on days 1 to 5 and 8 to 12
     Route: 042

REACTIONS (6)
  - Leukopenia [Unknown]
  - Thrombocytopenia [Unknown]
  - Stomatitis [Unknown]
  - Decreased appetite [Unknown]
  - Anaemia [Unknown]
  - Rash [Unknown]
